FAERS Safety Report 4317259-1 (Version None)
Quarter: 2004Q1

REPORT INFORMATION
  Report Type: 
  Country: None (occurrence: None)
  Receive Date: 20040312
  Receipt Date: 20040225
  Transmission Date: 20041129
  Serious: Yes (Other)
  Sender: FDA-Public Use
  Company Number: 2001-BP-00741(1)

PATIENT
  Age: 22 Year
  Sex: Female

DRUGS (2)
  1. NEVIRAPINE (TA) [Suspect]
     Indication: PROPHYLAXIS AGAINST HIV INFECTION
     Dosage: 200 MG (200 MG, SINGLE DOSE) PO
     Route: 048
     Dates: start: 20010110, end: 20010110
  2. PETHIDINE (PETHIDINE) [Concomitant]

REACTIONS (11)
  - CAESAREAN SECTION [None]
  - DYSURIA [None]
  - HAEMOGLOBIN DECREASED [None]
  - LEUKOCYTOSIS [None]
  - NEUTROPHIL TOXIC GRANULATION PRESENT [None]
  - NEUTROPHILIA [None]
  - PELVIC INFECTION [None]
  - POST PROCEDURAL COMPLICATION [None]
  - PYREXIA [None]
  - URINARY TRACT INFECTION [None]
  - VAGINAL HAEMORRHAGE [None]
